FAERS Safety Report 10264969 (Version 1)
Quarter: 2014Q2

REPORT INFORMATION
  Report Type: Spontaneous
  Country: US (occurrence: None)
  Receive Date: 20140625
  Receipt Date: 20140625
  Transmission Date: 20141212
  Serious: No
  Sender: FDA-Public Use
  Company Number: None

PATIENT
  Age: 62 Year
  Sex: Female

DRUGS (1)
  1. RIBAVIRIN [Suspect]
     Indication: UNEVALUABLE EVENT
     Route: 048
     Dates: start: 20140402, end: 20140612

REACTIONS (1)
  - Blood test abnormal [None]
